FAERS Safety Report 13621144 (Version 1)
Quarter: 2017Q2

REPORT INFORMATION
  Report Type: Spontaneous
  Country: CH (occurrence: CH)
  Receive Date: 20170607
  Receipt Date: 20170607
  Transmission Date: 20170830
  Serious: Yes (Other)
  Sender: FDA-Public Use
  Company Number: CH-ROCHE-1942984

PATIENT
  Age: 59 Year
  Sex: Male
  Weight: 72 kg

DRUGS (11)
  1. SPRYCEL [Suspect]
     Active Substance: DASATINIB
     Route: 048
     Dates: start: 20170105
  2. ASPIRIN CARDIO [Concomitant]
     Active Substance: ASPIRIN
     Dosage: PER DAY
     Route: 065
  3. CALCIMAGON-D3 [Concomitant]
     Active Substance: CALCIUM\CHOLECALCIFEROL
     Dosage: PER DAY
     Route: 065
  4. ATORVASTATIN [Concomitant]
     Active Substance: ATORVASTATIN
     Dosage: PER DAY
     Route: 065
  5. VALCYTE [Suspect]
     Active Substance: VALGANCICLOVIR HYDROCHLORIDE
     Indication: CYTOMEGALOVIRUS COLITIS
     Dosage: PREVIOUSLY GIVEN FOR THREE PERIODS, THERAPEUTIC REGIMEN NOT GIVEN, IN DECEMBER 2015, [MID-JANUARY]
     Route: 048
     Dates: start: 201512
  6. GLIVEC [Suspect]
     Active Substance: IMATINIB MESYLATE
     Indication: ACUTE LYMPHOCYTIC LEUKAEMIA
     Dosage: GIVEN FOR TWO PERIODS: FROM JUNE/2015 TO JULY/2015 AND FROM JULY/2016 TO JAN/2017
     Route: 048
     Dates: start: 20150630, end: 20170105
  7. VALACICLOVIR [Suspect]
     Active Substance: VALACYCLOVIR HYDROCHLORIDE
     Indication: PROPHYLACTIC CHEMOTHERAPY
     Dosage: PREVIOUSLY GIVEN FOR THREE PERIODS, THERAPEUTIC REGIMEN NOT GIVEN, IN DEC/2015, (MID-JANUARY)
     Route: 048
  8. NEXIUM [Concomitant]
     Active Substance: ESOMEPRAZOLE MAGNESIUM
     Dosage: PER DAY
     Route: 065
  9. VALCYTE [Suspect]
     Active Substance: VALGANCICLOVIR HYDROCHLORIDE
     Route: 048
     Dates: start: 20170517
  10. SPRYCEL [Suspect]
     Active Substance: DASATINIB
     Indication: ACUTE LYMPHOCYTIC LEUKAEMIA
     Dosage: PREVIOUSLY ADMINISTERED FROM JULY/2015 TO 30/JUNE/2016 AT 140 MG/DAY. RESTARTED WITH A REDUCED DOSAG
     Route: 065
     Dates: start: 201507, end: 20160630
  11. METO ZEROK [Concomitant]
     Active Substance: METOPROLOL SUCCINATE
     Dosage: PER DAY
     Route: 065

REACTIONS (9)
  - Weight decreased [Recovering/Resolving]
  - Nasal congestion [Recovered/Resolved]
  - Cytomegalovirus colitis [Recovering/Resolving]
  - Pancytopenia [Not Recovered/Not Resolved]
  - Hypoalbuminaemia [Recovering/Resolving]
  - Diarrhoea [Recovering/Resolving]
  - Rectal haemorrhage [Recovered/Resolved]
  - Pleural effusion [Unknown]
  - Eyelid oedema [Recovered/Resolved]

NARRATIVE: CASE EVENT DATE: 201606
